FAERS Safety Report 26101799 (Version 1)
Quarter: 2025Q4

REPORT INFORMATION
  Report Type: Spontaneous
  Country: CA (occurrence: CA)
  Receive Date: 20251128
  Receipt Date: 20251128
  Transmission Date: 20260118
  Serious: Yes (Hospitalization)
  Sender: AMICUS THERAPEUTICS
  Company Number: CA-AMICUS THERAPEUTICS, INC.-AMI_4522

PATIENT
  Age: 59 Year
  Sex: Male

DRUGS (2)
  1. GALAFOLD [Suspect]
     Active Substance: MIGALASTAT HYDROCHLORIDE
     Indication: Fabry^s disease
     Dosage: UNK
     Route: 048
  2. GALAFOLD [Suspect]
     Active Substance: MIGALASTAT HYDROCHLORIDE
     Dosage: UNK
     Route: 048

REACTIONS (2)
  - Heart transplant [Recovered/Resolved]
  - Glomerular filtration rate decreased [Recovered/Resolved]
